FAERS Safety Report 12263014 (Version 3)
Quarter: 2016Q2

REPORT INFORMATION
  Report Type: Spontaneous
  Country: US (occurrence: US)
  Receive Date: 20160413
  Receipt Date: 20160504
  Transmission Date: 20160815
  Serious: No
  Sender: FDA-Public Use
  Company Number: US-PFIZER INC-2016172085

PATIENT
  Age: 68 Year
  Sex: Male

DRUGS (1)
  1. SUTENT [Suspect]
     Active Substance: SUNITINIB MALATE
     Indication: RENAL CANCER
     Dosage: 50 MG, 1X/DAY

REACTIONS (5)
  - Nausea [Not Recovered/Not Resolved]
  - Memory impairment [Unknown]
  - Dehydration [Not Recovered/Not Resolved]
  - Confusional state [Unknown]
  - Feeling abnormal [Unknown]
